FAERS Safety Report 9400355 (Version 1)
Quarter: 2013Q3

REPORT INFORMATION
  Report Type: Spontaneous
  Country: FR (occurrence: FR)
  Receive Date: 20130715
  Receipt Date: 20130715
  Transmission Date: 20140515
  Serious: Yes (Death, Hospitalization, Other)
  Sender: FDA-Public Use
  Company Number: FR-TEVA-403660ISR

PATIENT
  Age: 59 Year
  Sex: Male

DRUGS (8)
  1. OXALIPLATINE TEVA [Suspect]
     Indication: GASTROINTESTINAL STROMAL CANCER
     Dosage: 180 MILLIGRAM DAILY;
     Route: 042
     Dates: start: 20130403, end: 20130403
  2. XELODA 500MG, COMPRIME PELLICULE [Suspect]
     Dosage: 1.83 GRAM DAILY;
     Route: 048
     Dates: start: 201304, end: 201304
  3. AVASTIN 25MG/ML, SOLUTION A DILUER POUR PERFUSION [Suspect]
     Dosage: 500 MILLIGRAM DAILY;
     Route: 042
     Dates: start: 20130403, end: 20130403
  4. MOPRAL [Concomitant]
  5. MOPRAL [Concomitant]
  6. PROZAC [Concomitant]
  7. INNOHEP [Concomitant]
  8. ATARAX [Concomitant]

REACTIONS (9)
  - Death [Fatal]
  - Mucosal inflammation [Recovering/Resolving]
  - Weight decreased [Recovered/Resolved]
  - Dysphagia [Unknown]
  - Jaundice [Unknown]
  - General physical health deterioration [Unknown]
  - Hepatic encephalopathy [Unknown]
  - Asterixis [Unknown]
  - Asthenia [Recovered/Resolved]
